FAERS Safety Report 21566808 (Version 1)
Quarter: 2022Q4

REPORT INFORMATION
  Report Type: Spontaneous
  Country: US (occurrence: None)
  Receive Date: 20221107
  Receipt Date: 20221107
  Transmission Date: 20230113
  Serious: No
  Sender: FDA-Public Use
  Company Number: None

PATIENT
  Age: 61 Year
  Sex: Female
  Weight: 90 kg

DRUGS (1)
  1. ESTRADIOL TRANSDERMAL SYSTEM [Suspect]
     Active Substance: ESTRADIOL
     Indication: Hot flush
     Dosage: OTHER QUANTITY : 1 PATCH(ES);?OTHER FREQUENCY : TWICE WEEKLY;?
     Route: 061
     Dates: start: 20221001, end: 20221028

REACTIONS (7)
  - Product substitution issue [None]
  - Fatigue [None]
  - Feeling abnormal [None]
  - Asthenia [None]
  - Alopecia [None]
  - Product adhesion issue [None]
  - Therapeutic product effect incomplete [None]

NARRATIVE: CASE EVENT DATE: 20221010
